FAERS Safety Report 4511426-X (Version None)
Quarter: 2004Q4

REPORT INFORMATION
  Report Type: 
  Country: None (occurrence: None)
  Receive Date: 20041129
  Receipt Date: 20040805
  Transmission Date: 20050328
  Serious: No
  Sender: FDA-Public Use
  Company Number: US-BRISTOL-MYERS SQUIBB COMPANY-12663480

PATIENT
  Age: 69 Year
  Sex: Female
  Weight: 86 kg

DRUGS (11)
  1. ABILIFY [Suspect]
     Indication: DEPRESSION
     Route: 048
     Dates: start: 20030101
  2. EFFEXOR XR [Concomitant]
  3. SYNTHROID [Concomitant]
  4. TRIAMTERENE AND HYDROCHLOROTHIAZIDE [Concomitant]
  5. DETROL [Concomitant]
  6. VERAPAMIL [Concomitant]
  7. CORAL CALCIUM [Concomitant]
  8. VITAMIN B COMPLEX CAP [Concomitant]
  9. VITAMIN C [Concomitant]
  10. FLAXSEED OIL [Concomitant]
  11. PREMPRO [Concomitant]

REACTIONS (2)
  - ABNORMAL DREAMS [None]
  - TENSION [None]
